FAERS Safety Report 17145391 (Version 1)
Quarter: 2019Q4

REPORT INFORMATION
  Report Type: Spontaneous
  Country: US (occurrence: US)
  Receive Date: 20191211
  Receipt Date: 20191211
  Transmission Date: 20200122
  Serious: No
  Sender: FDA-Public Use
  Company Number: None

PATIENT
  Age: 30 Year
  Sex: Female
  Weight: 60.75 kg

DRUGS (6)
  1. TRI-SPRINTEC [Concomitant]
     Active Substance: ETHINYL ESTRADIOL\NORGESTIMATE
  2. LIALDA [Concomitant]
     Active Substance: MESALAMINE
  3. S. BOULLIARDI [Concomitant]
  4. MESALAMINE 1.2GM TABLETS, GENERIC FOR LIALDA 1.2GM TABLETS [Suspect]
     Active Substance: MESALAMINE
     Indication: CROHN^S DISEASE
     Dosage: ?          QUANTITY:2 TABLET(S);?
     Route: 048
     Dates: start: 20191210, end: 20191211
  5. BETA-TCP [Concomitant]
  6. HUMIRA [Concomitant]
     Active Substance: ADALIMUMAB

REACTIONS (4)
  - Drug ineffective [None]
  - Product residue present [None]
  - Flatulence [None]
  - Abdominal pain upper [None]

NARRATIVE: CASE EVENT DATE: 20191211
